FAERS Safety Report 9632135 (Version 1)
Quarter: 2013Q4

REPORT INFORMATION
  Report Type: Spontaneous
  Country: None (occurrence: None)
  Receive Date: 20131016
  Receipt Date: 20131016
  Transmission Date: 20140711
  Serious: Yes (Hospitalization, Other)
  Sender: FDA-Public Use
  Company Number: GB-DEXPHARM-20130709

PATIENT
  Age: 68 Year
  Sex: Female

DRUGS (14)
  1. OMEPRAZOLE [Suspect]
     Indication: HIATUS HERNIA
     Dosage: FROM TWO TO ONE PER DAY. 2 DF DOSAGE FORM
  2. PIMOZINE [Suspect]
  3. LANSOPRAZOLE [Suspect]
     Indication: GASTRITIS EROSIVE
     Route: 048
     Dates: start: 20130314, end: 20130322
  4. LANSOPRAZOLE [Suspect]
     Indication: FAECES DISCOLOURED
     Dates: start: 20110205
  5. CISAPRIDE [Concomitant]
  6. COD LIVER OIL [Concomitant]
  7. COPPER [Concomitant]
  8. CYNOMEL [Concomitant]
  9. ERYTHROMYCIN [Concomitant]
  10. PREDNISOLONE [Concomitant]
  11. TRIPHALA [Concomitant]
  12. VITAMIN D2 [Concomitant]
  13. VITAMIN K [Concomitant]
  14. ZINC [Concomitant]

REACTIONS (8)
  - Breast cancer [None]
  - Diarrhoea [None]
  - Electrolyte imbalance [None]
  - Feeling hot [None]
  - Urinary tract infection [None]
  - Weight increased [None]
  - Pain [None]
  - Presyncope [None]
